FAERS Safety Report 11798257 (Version 2)
Quarter: 2016Q3

REPORT INFORMATION
  Report Type: Report from Study
  Country: BR (occurrence: BR)
  Receive Date: 20151203
  Receipt Date: 20160802
  Transmission Date: 20161109
  Serious: Yes (Hospitalization, Other)
  Sender: FDA-Public Use
  Company Number: BR-ABBVIE-15K-020-1490836-00

PATIENT
  Age: 41 Year
  Sex: Female
  Weight: 87 kg

DRUGS (3)
  1. NEOVLAR [Concomitant]
     Indication: CONTRACEPTION
     Route: 048
     Dates: start: 2002
  2. AZATHIOPRINE. [Concomitant]
     Active Substance: AZATHIOPRINE
     Indication: CROHN^S DISEASE
     Route: 048
     Dates: start: 2015
  3. HUMIRA [Suspect]
     Active Substance: ADALIMUMAB
     Indication: CROHN^S DISEASE
     Route: 058
     Dates: start: 20120101, end: 201605

REACTIONS (10)
  - Crohn^s disease [Unknown]
  - Haematuria [Unknown]
  - Small intestine ulcer [Recovering/Resolving]
  - Drug ineffective [Recovered/Resolved]
  - Feeding disorder [Unknown]
  - Gastritis [Unknown]
  - Pain [Recovering/Resolving]
  - Vomiting [Unknown]
  - Urinary tract infection [Recovered/Resolved]
  - Weight decreased [Recovering/Resolving]

NARRATIVE: CASE EVENT DATE: 201509
